FAERS Safety Report 14161668 (Version 1)
Quarter: 2017Q4

REPORT INFORMATION
  Report Type: Spontaneous
  Country: US (occurrence: None)
  Receive Date: 20171105
  Receipt Date: 20171105
  Transmission Date: 20180321
  Serious: Yes (Life-Threatening, Disabling, Other)
  Sender: FDA-Public Use
  Company Number: None

PATIENT
  Age: 34 Year
  Weight: 75.3 kg

DRUGS (2)
  1. BASAGLAR [Suspect]
     Active Substance: INSULIN GLARGINE
     Indication: DIABETES MELLITUS
     Dosage: IN THE MORNING INJECTION
  2. MEDICAL MARIJUANA [Concomitant]
     Active Substance: CANNABIS SATIVA SUBSP. INDICA TOP

REACTIONS (9)
  - Hunger [None]
  - Vision blurred [None]
  - Injection site pain [None]
  - Blood glucose decreased [None]
  - Depressed mood [None]
  - Hypoaesthesia oral [None]
  - Anxiety [None]
  - Mood altered [None]
  - Fear [None]

NARRATIVE: CASE EVENT DATE: 20171023
